FAERS Safety Report 8771904 (Version 1)
Quarter: 2012Q4

REPORT INFORMATION
  Report Type: 
  Country: US (occurrence: US)
  Receive Date: 20120906
  Receipt Date: 20120906
  Transmission Date: 20130627
  Serious: No
  Sender: FDA-Public Use
  Company Number: US-PFIZER INC-2012215258

PATIENT
  Age: 42 Year
  Sex: Male
  Weight: 86.17 kg

DRUGS (4)
  1. LYRICA [Suspect]
     Indication: NEURALGIA
     Dosage: 100 mg, 3x/day
     Route: 048
  2. LYRICA [Suspect]
     Indication: PARAESTHESIA
     Dosage: 200 mg, UNK
     Route: 048
  3. LYRICA [Suspect]
     Indication: HYPOAESTHESIA
  4. LYRICA [Suspect]
     Indication: NERVOUS SYSTEM DISORDER

REACTIONS (1)
  - Drug ineffective [Unknown]
